FAERS Safety Report 6140881-7 (Version None)
Quarter: 2009Q1

REPORT INFORMATION
  Report Type: 
  Country: None (occurrence: None)
  Receive Date: 20090331
  Receipt Date: 20090319
  Transmission Date: 20090719
  Serious: No
  Sender: FDA-Public Use
  Company Number: 2009-193573-NL

PATIENT

DRUGS (2)
  1. MIRTAZAPINE [Suspect]
     Dosage: DF
  2. BUPROPION HYDROCHLORIDE [Concomitant]

REACTIONS (1)
  - HEPATOTOXICITY [None]
